FAERS Safety Report 8018467-9 (Version None)
Quarter: 2012Q1

REPORT INFORMATION
  Report Type: 
  Country: None (occurrence: None)
  Receive Date: 20120103
  Receipt Date: 20111226
  Transmission Date: 20120608
  Serious: Yes (Other)
  Sender: FDA-Public Use
  Company Number: FR-BAYER-2011-123630

PATIENT
  Age: 29 Year
  Sex: Female

DRUGS (5)
  1. ESCITALOPRAM OXALATE [Concomitant]
     Dosage: UNK
     Route: 048
     Dates: start: 20110601, end: 20111122
  2. DESLORATADINE [Concomitant]
     Dosage: UNK
     Route: 048
  3. ESTRADIOL VALERATE/DIENOGEST [Suspect]
     Indication: PRODUCT USED FOR UNKNOWN INDICATION
     Dosage: 1 DF, QD
     Route: 048
     Dates: start: 20110501, end: 20111120
  4. CELESTAMINE TAB [Suspect]
     Indication: RHINITIS
     Dosage: 1 DF, QD
     Route: 048
     Dates: start: 20111114, end: 20111116
  5. ESPERAL [Concomitant]
     Dosage: UNK
     Route: 048
     Dates: start: 20111020, end: 20111122

REACTIONS (7)
  - VIRAL UPPER RESPIRATORY TRACT INFECTION [None]
  - COUGH [None]
  - HEADACHE [None]
  - AGRANULOCYTOSIS [None]
  - RHINITIS [None]
  - SINUS HEADACHE [None]
  - ASTHENIA [None]
